FAERS Safety Report 7483409-1 (Version None)
Quarter: 2011Q2

REPORT INFORMATION
  Report Type: 
  Country: None (occurrence: None)
  Receive Date: 20110512
  Receipt Date: 20110512
  Transmission Date: 20111010
  Serious: Yes (Disabling)
  Sender: FDA-Public Use
  Company Number: None

PATIENT
  Age: 68 Year
  Sex: Female
  Weight: 67.1324 kg

DRUGS (4)
  1. CRESTOR [Concomitant]
  2. ZOCOR [Suspect]
     Indication: BLOOD CHOLESTEROL INCREASED
     Dosage: 40MG QD-HS PO
     Route: 048
     Dates: start: 20051201, end: 20051210
  3. LIPITOR [Concomitant]
  4. FENOFIBRATE [Concomitant]

REACTIONS (2)
  - DYSSTASIA [None]
  - GAIT DISTURBANCE [None]
